FAERS Safety Report 6658724-1 (Version None)
Quarter: 2010Q1

REPORT INFORMATION
  Report Type: 
  Country: None (occurrence: None)
  Receive Date: 20100330
  Receipt Date: 20100322
  Transmission Date: 20100710
  Serious: Yes (Other)
  Sender: FDA-Public Use
  Company Number: PHHY2010MX07299

PATIENT
  Age: 70 Year
  Sex: Female

DRUGS (2)
  1. ZELMAC [Suspect]
     Indication: IRRITABLE BOWEL SYNDROME
     Dosage: 2 TABLETS (6MG) PER DAY
     Route: 048
     Dates: start: 20100201, end: 20100203
  2. AMARYL [Concomitant]
     Dosage: UNK

REACTIONS (5)
  - CHEST PAIN [None]
  - GASTRITIS [None]
  - HEADACHE [None]
  - MALAISE [None]
  - NAUSEA [None]
